FAERS Safety Report 6226466-2 (Version None)
Quarter: 2009Q2

REPORT INFORMATION
  Report Type: 
  Country: None (occurrence: None)
  Receive Date: 20090612
  Receipt Date: 20090515
  Transmission Date: 20091009
  Serious: No
  Sender: FDA-Public Use
  Company Number: US-ABBOTT-09P-163-0573884-00

PATIENT
  Sex: Female
  Weight: 72.64 kg

DRUGS (14)
  1. HUMIRA [Suspect]
     Indication: CROHN'S DISEASE
     Route: 058
     Dates: start: 20081001
  2. MERCAPTOPURINE [Concomitant]
     Indication: CROHN'S DISEASE
     Route: 048
  3. IRON [Concomitant]
     Indication: ANAEMIA OF CHRONIC DISEASE
     Route: 048
  4. PROTONIX [Concomitant]
     Indication: GASTROOESOPHAGEAL REFLUX DISEASE
     Route: 048
  5. ZYRTEC [Concomitant]
     Indication: SEASONAL ALLERGY
     Route: 048
  6. AMITRIPTLINE HYDROCHLORIDE TAB [Concomitant]
     Indication: MIGRAINE PROPHYLAXIS
     Route: 048
  7. TOPAMAX [Concomitant]
     Indication: MIGRAINE PROPHYLAXIS
     Route: 048
  8. ATARAX [Concomitant]
     Indication: PRURITUS
     Route: 048
  9. ATARAX [Concomitant]
     Indication: HYPERSENSITIVITY
  10. MAXALT [Concomitant]
     Indication: MIGRAINE
     Route: 048
  11. IMODIUM [Concomitant]
     Indication: DIARRHOEA
     Route: 048
  12. IMODIUM [Concomitant]
     Indication: CROHN'S DISEASE
  13. ALIGN PROBIOTIC [Concomitant]
     Indication: CROHN'S DISEASE
     Route: 048
     Dates: start: 20090101
  14. AMBIEN [Concomitant]
     Indication: INSOMNIA
     Route: 048

REACTIONS (2)
  - ACNE [None]
  - CONTUSION [None]
